FAERS Safety Report 17859441 (Version 1)
Quarter: 2020Q2

REPORT INFORMATION
  Report Type: Spontaneous
  Country: US (occurrence: US)
  Receive Date: 20200603
  Receipt Date: 20200603
  Transmission Date: 20200714
  Serious: No
  Sender: FDA-Public Use
  Company Number: None

PATIENT
  Age: 74 Year
  Sex: Female

DRUGS (19)
  1. AMBRISENTAN [Suspect]
     Active Substance: AMBRISENTAN
     Route: 048
  2. BUPROPION. [Concomitant]
     Active Substance: BUPROPION
  3. DILTIAZEM. [Concomitant]
     Active Substance: DILTIAZEM
  4. ESOMERRA MAG [Concomitant]
  5. LITHIUM CARB [Concomitant]
     Active Substance: LITHIUM CARBONATE
  6. ATORVASTATIN [Concomitant]
     Active Substance: ATORVASTATIN
  7. ELIQUIS [Concomitant]
     Active Substance: APIXABAN
  8. RANITIDINE. [Concomitant]
     Active Substance: RANITIDINE
  9. ESZOPICLONE. [Concomitant]
     Active Substance: ESZOPICLONE
  10. PILOCARPINE. [Concomitant]
     Active Substance: PILOCARPINE
  11. METROPOL [Concomitant]
  12. MIRTAZAPINE. [Concomitant]
     Active Substance: MIRTAZAPINE
  13. LAMOTRIGINE. [Suspect]
     Active Substance: LAMOTRIGINE
  14. OLANZAPINE. [Concomitant]
     Active Substance: OLANZAPINE
  15. TADALAFIL. [Concomitant]
     Active Substance: TADALAFIL
  16. IRBESARTAN. [Concomitant]
     Active Substance: IRBESARTAN
  17. LAMOTRIGINE. [Concomitant]
     Active Substance: LAMOTRIGINE
  18. MYRBETRIQ [Concomitant]
     Active Substance: MIRABEGRON
  19. LAMOTRIGINE. [Suspect]
     Active Substance: LAMOTRIGINE

REACTIONS (3)
  - Swollen tongue [None]
  - Lip swelling [None]
  - Dyspnoea [None]

NARRATIVE: CASE EVENT DATE: 20200602
